FAERS Safety Report 5840312-8 (Version None)
Quarter: 2008Q3

REPORT INFORMATION
  Report Type: 
  Country: None (occurrence: None)
  Receive Date: 20080730
  Receipt Date: 20080618
  Transmission Date: 20090109
  Serious: No
  Sender: FDA-Public Use
  Company Number: PHEH2008US04513

PATIENT
  Age: 80 Year
  Sex: Female

DRUGS (2)
  1. TEKTURNA [Suspect]
     Dosage: 150 MG, QD, ORAL ; 450 MG, QD, ORAL
     Route: 048
     Dates: start: 20080201, end: 20080402
  2. TEKTURNA [Suspect]
     Dosage: 150 MG, QD, ORAL ; 450 MG, QD, ORAL
     Route: 048
     Dates: start: 20080403

REACTIONS (2)
  - BLOOD PRESSURE INADEQUATELY CONTROLLED [None]
  - MEDICATION RESIDUE [None]
